FAERS Safety Report 16737310 (Version 1)
Quarter: 2019Q3

REPORT INFORMATION
  Report Type: Spontaneous
  Country: GB (occurrence: GB)
  Receive Date: 20190823
  Receipt Date: 20190823
  Transmission Date: 20191005
  Serious: Yes (Other)
  Sender: FDA-Public Use
  Company Number: GB-TEVA-2019-GB-1095725

PATIENT
  Age: 36 Year
  Sex: Female
  Weight: 95 kg

DRUGS (14)
  1. DOXYCYCLINE. [Suspect]
     Active Substance: DOXYCYCLINE
     Route: 065
     Dates: start: 20190719
  2. AMOXICILLIN. [Concomitant]
     Active Substance: AMOXICILLIN
     Dosage: FOR 5 DAYS, TO TREAT INFECTION
     Dates: start: 20190524, end: 20190529
  3. FEXOFENADINE [Concomitant]
     Active Substance: FEXOFENADINE HYDROCHLORIDE
     Dates: start: 20180711
  4. SYMBICORT [Concomitant]
     Active Substance: BUDESONIDE\FORMOTEROL FUMARATE DIHYDRATE
     Dosage: PUFF
     Route: 055
     Dates: start: 20180504
  5. CODEINE PHOSPHATE [Concomitant]
     Active Substance: CODEINE PHOSPHATE
     Dosage: 1 OR 2 UP TO FOUR TIMES A DAY FOR......
     Dates: start: 20190410
  6. NYSTAN [Concomitant]
     Active Substance: NYSTATIN
     Dosage: TO BE RINSED AROUND THE MOUTH AND THEN SWALLOWED TO TREAT ORAL THRUSH
     Dates: start: 20190711, end: 20190717
  7. DUAC [Concomitant]
     Active Substance: BENZOYL PEROXIDE\CLINDAMYCIN PHOSPHATE
     Dates: start: 20180504
  8. PREDNISOLONE. [Concomitant]
     Active Substance: PREDNISOLONE
     Dosage: FOR FIVE DAYS
     Dates: start: 20190524, end: 20190529
  9. FLUCONAZOLE. [Concomitant]
     Active Substance: FLUCONAZOLE
     Dosage: FOR 7 DAYS FOR FUNG...
     Dates: start: 20181030
  10. HYDROXOCOBALAMIN [Concomitant]
     Active Substance: HYDROXOCOBALAMIN
     Dosage: AS DIRECTED
     Route: 030
     Dates: start: 20190628, end: 20190701
  11. CYCLIZINE [Concomitant]
     Active Substance: CYCLIZINE
     Dosage: UP TO MAXIMUM OF THREE TIMES DAILY
     Dates: start: 20190719
  12. CLOTRIMAZOLE. [Concomitant]
     Active Substance: CLOTRIMAZOLE
     Dates: start: 20180504, end: 20190430
  13. TERBUTALINE [Concomitant]
     Active Substance: TERBUTALINE
     Dosage: 1-2 PUFFS WHEN REQUIRED TO RELIEVE BREATHING PR...
     Dates: start: 20180504
  14. MIRTAZAPINE. [Concomitant]
     Active Substance: MIRTAZAPINE
     Dates: start: 20180913

REACTIONS (2)
  - Rash [Recovered/Resolved]
  - Pharyngeal swelling [Recovered/Resolved]

NARRATIVE: CASE EVENT DATE: 20190719
